FAERS Safety Report 14296637 (Version 1)
Quarter: 2017Q4

REPORT INFORMATION
  Report Type: Spontaneous
  Country: GB (occurrence: US)
  Receive Date: 20171216
  Receipt Date: 20171216
  Transmission Date: 20180321
  Serious: Yes (Disabling)
  Sender: FDA-Public Use
  Company Number: None

PATIENT
  Sex: Female
  Weight: 62 kg

DRUGS (5)
  1. HTP -5 [Concomitant]
  2. ANTIDEPRESSANTS [Concomitant]
     Active Substance: UNSPECIFIED INGREDIENT
  3. DIAZEPAM. [Concomitant]
     Active Substance: DIAZEPAM
  4. JAI WEI CHINESE TRADITIONAL MEDICINE [Concomitant]
  5. MIRENA [Suspect]
     Active Substance: LEVONORGESTREL
     Dates: start: 20130505, end: 20160404

REACTIONS (4)
  - Anxiety [None]
  - Nervousness [None]
  - Lethargy [None]
  - Depression [None]

NARRATIVE: CASE EVENT DATE: 20130108
